FAERS Safety Report 8996749 (Version 1)
Quarter: 2012Q4

REPORT INFORMATION
  Report Type: Spontaneous
  Country: US (occurrence: None)
  Receive Date: 20121228
  Receipt Date: 20121228
  Transmission Date: 20130627
  Serious: Yes (Death, Other)
  Sender: FDA-Public Use
  Company Number: None

PATIENT
  Sex: Male
  Weight: 89.36 kg

DRUGS (2)
  1. CLOPIDOGREL [Suspect]
     Indication: TRANSIENT ISCHEMIC ATTACK
     Dates: start: 20121025, end: 20121121
  2. CLOPIDOGREL [Suspect]
     Indication: STROKE
     Dates: start: 20121025, end: 20121121

REACTIONS (4)
  - Oedema peripheral [None]
  - Oedema peripheral [None]
  - Capillary fragility [None]
  - Pain in extremity [None]
